FAERS Safety Report 8029584-1 (Version None)
Quarter: 2012Q1

REPORT INFORMATION
  Report Type: 
  Country: None (occurrence: None)
  Receive Date: 20120109
  Receipt Date: 20120105
  Transmission Date: 20120608
  Serious: No
  Sender: FDA-Public Use
  Company Number: US-PFIZER INC-2012003987

PATIENT
  Sex: Female
  Weight: 49.887 kg

DRUGS (1)
  1. EFFEXOR XR [Suspect]
     Indication: DEPRESSION
     Dosage: 75 MG, 2X/DAY
     Route: 048
     Dates: start: 20111228, end: 20120101

REACTIONS (4)
  - MALAISE [None]
  - VOMITING [None]
  - ACTIVITIES OF DAILY LIVING IMPAIRED [None]
  - NAUSEA [None]
